FAERS Safety Report 24691044 (Version 8)
Quarter: 2025Q2

REPORT INFORMATION
  Report Type: Spontaneous
  Country: US (occurrence: US)
  Receive Date: 20241203
  Receipt Date: 20250630
  Transmission Date: 20250716
  Serious: Yes (Other)
  Sender: BAYER HEALTHCARE PHARMACEUTICALS INC.
  Company Number: US-BAYER-2024A171062

PATIENT
  Age: 13 Year
  Sex: Male
  Weight: 53.061 kg

DRUGS (21)
  1. KOVALTRY [Suspect]
     Active Substance: ANTIHEMOPHILIC FACTOR, HUMAN RECOMBINANT
     Indication: Factor VIII deficiency
     Route: 042
     Dates: start: 201211
  2. KOVALTRY [Suspect]
     Active Substance: ANTIHEMOPHILIC FACTOR, HUMAN RECOMBINANT
     Indication: Prophylaxis
     Route: 042
     Dates: start: 201211
  3. KOVALTRY [Suspect]
     Active Substance: ANTIHEMOPHILIC FACTOR, HUMAN RECOMBINANT
     Indication: Factor VIII deficiency
     Route: 042
     Dates: start: 201211
  4. KOVALTRY [Suspect]
     Active Substance: ANTIHEMOPHILIC FACTOR, HUMAN RECOMBINANT
     Indication: Factor VIII deficiency
     Route: 042
     Dates: start: 201211
  5. KOVALTRY [Suspect]
     Active Substance: ANTIHEMOPHILIC FACTOR, HUMAN RECOMBINANT
     Indication: Factor VIII deficiency
     Route: 042
     Dates: start: 202211
  6. KOVALTRY [Suspect]
     Active Substance: ANTIHEMOPHILIC FACTOR, HUMAN RECOMBINANT
     Indication: Factor VIII deficiency
     Route: 042
     Dates: start: 202211
  7. KOVALTRY [Suspect]
     Active Substance: ANTIHEMOPHILIC FACTOR, HUMAN RECOMBINANT
     Indication: Factor VIII deficiency
     Route: 042
  8. KOVALTRY [Suspect]
     Active Substance: ANTIHEMOPHILIC FACTOR, HUMAN RECOMBINANT
     Indication: Factor VIII deficiency
     Dosage: 2 PREVENTATIVE DOSE TO TREAT THE BLEED
     Route: 042
     Dates: start: 20241128, end: 20241128
  9. KOVALTRY [Suspect]
     Active Substance: ANTIHEMOPHILIC FACTOR, HUMAN RECOMBINANT
     Indication: Factor VIII deficiency
     Route: 042
     Dates: start: 202502
  10. KOVALTRY [Suspect]
     Active Substance: ANTIHEMOPHILIC FACTOR, HUMAN RECOMBINANT
     Indication: Factor VIII deficiency
     Route: 042
     Dates: start: 202502
  11. KOVALTRY [Suspect]
     Active Substance: ANTIHEMOPHILIC FACTOR, HUMAN RECOMBINANT
     Indication: Factor VIII deficiency
     Dosage: KOVALTRY 250 UNITS/INFUSE 500 UNITS 2 TIMES A WEEK
     Route: 042
     Dates: start: 202211
  12. KOVALTRY [Suspect]
     Active Substance: ANTIHEMOPHILIC FACTOR, HUMAN RECOMBINANT
     Indication: Factor VIII deficiency
     Dosage: KOVALTRY 1000 UNITS/INFUSE 1000 UNITS, 2 TIMES A WEEK
     Route: 042
     Dates: start: 202211
  13. KOVALTRY [Suspect]
     Active Substance: ANTIHEMOPHILIC FACTOR, HUMAN RECOMBINANT
     Indication: Factor VIII deficiency
     Dosage: KOVALTRY 3000 UNITS/INFUSE 3000 UNITS, 1 TIME A WEEK
     Route: 042
     Dates: start: 202211
  14. KOVALTRY [Suspect]
     Active Substance: ANTIHEMOPHILIC FACTOR, HUMAN RECOMBINANT
     Indication: Factor VIII deficiency
     Route: 042
     Dates: start: 202211
  15. KOVALTRY [Suspect]
     Active Substance: ANTIHEMOPHILIC FACTOR, HUMAN RECOMBINANT
     Indication: Factor VIII deficiency
     Dosage: KOVALTRY 3000 UNITS/INFUSE 3000 UNITS, EVERY FRIDAY
     Route: 042
     Dates: start: 202211
  16. KOVALTRY [Suspect]
     Active Substance: ANTIHEMOPHILIC FACTOR, HUMAN RECOMBINANT
     Indication: Factor VIII deficiency
     Dosage: KOVALTRY 250 UNITS/INFUSE 500 UNITS MONDAY + WEDNESDAY
     Route: 042
     Dates: start: 202211
  17. SODIUM CHLORIDE [Concomitant]
     Active Substance: SODIUM CHLORIDE
  18. HEPARIN [Concomitant]
     Active Substance: HEPARIN SODIUM
  19. HEPARIN [Concomitant]
     Active Substance: HEPARIN SODIUM
  20. AMINOCAPROIC ACID [Concomitant]
     Active Substance: AMINOCAPROIC ACID
  21. LIDOCAINE [Concomitant]
     Active Substance: LIDOCAINE

REACTIONS (9)
  - Haemarthrosis [Recovered/Resolved]
  - Haemarthrosis [None]
  - Haemorrhage [None]
  - Epistaxis [Not Recovered/Not Resolved]
  - Epistaxis [Not Recovered/Not Resolved]
  - Epistaxis [None]
  - Haemarthrosis [None]
  - Weight decreased [None]
  - Arthralgia [None]

NARRATIVE: CASE EVENT DATE: 20241128
